FAERS Safety Report 10482069 (Version 1)
Quarter: 2014Q3

REPORT INFORMATION
  Report Type: Spontaneous
  Country: US (occurrence: US)
  Receive Date: 20140929
  Receipt Date: 20140929
  Transmission Date: 20150326
  Serious: No
  Sender: FDA-Public Use
  Company Number: US-BAUSCH-BL-2014-001391

PATIENT
  Sex: Male

DRUGS (1)
  1. ERYTHROMYCIN OPHTHALMIC OINTMENT USP 0.5% [Suspect]
     Active Substance: ERYTHROMYCIN
     Indication: HORDEOLUM
     Dosage: 4 TIMES A DAY THE FIRST DAY, 3 TIMES A DAY THE SECOND DAY, AND ONLY TWICE A DAY THE THIRD DAY
     Route: 047
     Dates: start: 20140303, end: 20140305

REACTIONS (2)
  - Hordeolum [Recovering/Resolving]
  - Vision blurred [Recovered/Resolved]

NARRATIVE: CASE EVENT DATE: 20140303
